FAERS Safety Report 5373163-1 (Version None)
Quarter: 2007Q2

REPORT INFORMATION
  Report Type: 
  Country: None (occurrence: None)
  Receive Date: 20070627
  Receipt Date: 20070619
  Transmission Date: 20071010
  Serious: Yes (Other)
  Sender: FDA-Public Use
  Company Number: US-PFIZER INC-2007051813

PATIENT
  Sex: Female
  Weight: 53.2 kg

DRUGS (2)
  1. CHANTIX [Suspect]
     Indication: SMOKING CESSATION THERAPY
     Route: 048
  2. COPAXONE [Concomitant]

REACTIONS (2)
  - DYSGEUSIA [None]
  - GINGIVAL BLEEDING [None]
